APPROVED DRUG PRODUCT: CARBIDOPA, LEVODOPA AND ENTACAPONE
Active Ingredient: CARBIDOPA; ENTACAPONE; LEVODOPA
Strength: 12.5MG;200MG;50MG
Dosage Form/Route: TABLET;ORAL
Application: A218535 | Product #001 | TE Code: AB
Applicant: ALEMBIC PHARMACEUTICALS LTD
Approved: Feb 5, 2026 | RLD: No | RS: No | Type: RX